FAERS Safety Report 6872302-0 (Version None)
Quarter: 2010Q3

REPORT INFORMATION
  Report Type: 
  Country: None (occurrence: None)
  Receive Date: 20100723
  Receipt Date: 20100719
  Transmission Date: 20110219
  Serious: Yes (Death, Hospitalization, Other)
  Sender: FDA-Public Use
  Company Number: PHHY2010IE19181

PATIENT
  Sex: Male

DRUGS (10)
  1. CLOZARIL [Suspect]
     Indication: PSYCHOTIC DISORDER
     Dosage: 550MG
     Dates: start: 20080325, end: 20091025
  2. CLOZARIL [Suspect]
     Dosage: 500MG DAILY
     Dates: start: 20091026, end: 20100221
  3. LITHIUM [Concomitant]
     Indication: BIPOLAR DISORDER
     Dosage: 1400MG
  4. VALPROATE SODIUM [Concomitant]
     Indication: BIPOLAR DISORDER
     Dosage: 1000MG DAILY
     Route: 048
  5. KWELLS [Concomitant]
     Dosage: 300MG
     Route: 048
  6. PRIADEL [Concomitant]
     Dosage: 1400MG NOCTE
  7. HYOSCINE HBR HYT [Concomitant]
     Dosage: 300MG NOCTE
  8. FLURAZEPAM [Concomitant]
     Dosage: 30 MG, PRN
  9. SENOKOT                                 /UNK/ [Concomitant]
     Dosage: 2 TABLETS PRN
     Route: 048
  10. XENICAL [Concomitant]
     Dosage: 1 TABLET TID
     Route: 048

REACTIONS (34)
  - AORTIC ARTERIOSCLEROSIS [None]
  - ARRHYTHMIA [None]
  - BRAIN OEDEMA [None]
  - CARDIAC DISORDER [None]
  - CONTUSION [None]
  - DYSARTHRIA [None]
  - DYSPNOEA [None]
  - EXCORIATION [None]
  - FALL [None]
  - GLOMERULOSCLEROSIS [None]
  - HEPATIC CONGESTION [None]
  - HEPATIC STEATOSIS [None]
  - HYPERTENSIVE HEART DISEASE [None]
  - HYPOXIA [None]
  - INTERSTITIAL LUNG DISEASE [None]
  - LEFT VENTRICULAR HYPERTROPHY [None]
  - MUSCULAR WEAKNESS [None]
  - OESOPHAGITIS [None]
  - ONYCHOGRYPHOSIS [None]
  - PANCREATIC DISORDER [None]
  - PICKWICKIAN SYNDROME [None]
  - PULMONARY CONGESTION [None]
  - PULMONARY HAEMOSIDEROSIS [None]
  - PULMONARY OEDEMA [None]
  - RENAL CYST [None]
  - RESTLESSNESS [None]
  - RIB FRACTURE [None]
  - SCAR [None]
  - SKIN HYPERTROPHY [None]
  - SPLEEN CONGESTION [None]
  - SPLENOMEGALY [None]
  - TRANSIENT ISCHAEMIC ATTACK [None]
  - VENOUS INSUFFICIENCY [None]
  - WEIGHT INCREASED [None]
